FAERS Safety Report 7380270-0 (Version None)
Quarter: 2011Q1

REPORT INFORMATION
  Report Type: 
  Country: None (occurrence: None)
  Receive Date: 20110329
  Receipt Date: 20110317
  Transmission Date: 20110831
  Serious: Yes (Hospitalization)
  Sender: FDA-Public Use
  Company Number: FR-SANOFI-AVENTIS-2011SA016380

PATIENT
  Age: 73 Year
  Sex: Male

DRUGS (7)
  1. DI-HYDAN [Suspect]
     Route: 048
     Dates: start: 20101116, end: 20110109
  2. MEDROL [Concomitant]
  3. ZOLPIDEM [Suspect]
     Route: 048
     Dates: start: 20101116, end: 20110109
  4. OMEPRAZOLE [Suspect]
     Route: 048
     Dates: start: 20101116, end: 20110109
  5. FUROSEMIDE [Concomitant]
  6. COVERSYL /FRA/ [Suspect]
     Route: 048
     Dates: start: 20101116, end: 20110109
  7. BROMAZEPAM [Concomitant]

REACTIONS (5)
  - EOSINOPHILIA [None]
  - DRUG RASH WITH EOSINOPHILIA AND SYSTEMIC SYMPTOMS [None]
  - RASH MACULO-PAPULAR [None]
  - RENAL FAILURE ACUTE [None]
  - HEPATOCELLULAR INJURY [None]
